FAERS Safety Report 20736803 (Version 1)
Quarter: 2022Q2

REPORT INFORMATION
  Report Type: Spontaneous
  Country: US (occurrence: US)
  Receive Date: 20220421
  Receipt Date: 20220421
  Transmission Date: 20220721
  Serious: No
  Sender: FDA-Public Use
  Company Number: US-Kiniksa Pharmaceuticals Ltd.-2022KPU000134

PATIENT
  Age: 44 Year
  Sex: Male

DRUGS (2)
  1. ARCALYST [Suspect]
     Active Substance: RILONACEPT
     Indication: Product used for unknown indication
     Route: 058
     Dates: start: 202202
  2. ARCALYST [Suspect]
     Active Substance: RILONACEPT
     Indication: Product used for unknown indication

REACTIONS (1)
  - Product prescribing issue [Unknown]

NARRATIVE: CASE EVENT DATE: 20220222
